FAERS Safety Report 4624779-9 (Version None)
Quarter: 2005Q1

REPORT INFORMATION
  Report Type: 
  Country: None (occurrence: None)
  Receive Date: 20050107
  Receipt Date: 20041025
  Transmission Date: 20050727
  Serious: No
  Sender: FDA-Public Use
  Company Number: 235344K04USA

PATIENT
  Age: 35 Year
  Sex: Female

DRUGS (3)
  1. REBIF [Suspect]
     Indication: MULTIPLE SCLEROSIS
     Dosage: 22 MCG, 3 IN 1 WEEKS
     Dates: start: 20030912
  2. VITAMIN B12 [Concomitant]
  3. LEVOXYL [Concomitant]

REACTIONS (9)
  - AFFECT LABILITY [None]
  - AGGRESSION [None]
  - APATHY [None]
  - ASTHENIA [None]
  - CRYING [None]
  - FLAT AFFECT [None]
  - MOOD SWINGS [None]
  - MUSCLE SPASMS [None]
  - MYALGIA [None]
